FAERS Safety Report 4918139-0 (Version None)
Quarter: 2006Q1

REPORT INFORMATION
  Report Type: 
  Country: None (occurrence: None)
  Receive Date: 20060215
  Receipt Date: 20060208
  Transmission Date: 20060701
  Serious: Yes (Other)
  Sender: FDA-Public Use
  Company Number: 2006019713

PATIENT
  Sex: Female

DRUGS (2)
  1. METHYLPREDNISOLONE ACETATE [Suspect]
     Indication: ILL-DEFINED DISORDER
     Dosage: 40 MG
     Dates: start: 20060111, end: 20060111
  2. LIDOCAINE [Suspect]
     Indication: ILL-DEFINED DISORDER
     Dosage: 5 ML PARENTERAL
     Route: 051
     Dates: start: 20060111, end: 20060111

REACTIONS (4)
  - DIZZINESS [None]
  - TACHYCARDIA [None]
  - TREMOR [None]
  - VOMITING [None]
